FAERS Safety Report 17744353 (Version 2)
Quarter: 2020Q4

REPORT INFORMATION
  Report Type: Spontaneous
  Country: JP (occurrence: JP)
  Receive Date: 20200505
  Receipt Date: 20201012
  Transmission Date: 20210113
  Serious: Yes (Hospitalization, Other)
  Sender: FDA-Public Use
  Company Number: JP-LUPIN PHARMACEUTICALS INC.-2020-01836

PATIENT
  Age: 41 Year
  Sex: Female

DRUGS (8)
  1. DYDROGESTERONE [Concomitant]
     Active Substance: DYDROGESTERONE
     Indication: OVARIAN DISORDER
     Dosage: 15 MILLIGRAM, QD
     Route: 048
  2. HYDROXYCHLOROQUINE [Suspect]
     Active Substance: HYDROXYCHLOROQUINE
     Indication: SYSTEMIC LUPUS ERYTHEMATOSUS
     Dosage: 200 MILLIGRAM
     Route: 065
  3. PROGESTERONE. [Suspect]
     Active Substance: PROGESTERONE
     Indication: OVARIAN DISORDER
     Dosage: 300 MILLIGRAM, QD (UNTIL 10 WEEKS OF GESTATION)
     Route: 067
  4. OXYTOCIN. [Suspect]
     Active Substance: OXYTOCIN
     Indication: LABOUR PAIN
     Dosage: UNK (FOR 2 DAYS)
     Route: 065
  5. ESTRADIOL. [Suspect]
     Active Substance: ESTRADIOL
     Indication: ENDOMETRIAL THICKENING
     Dosage: 1.5 MILLIGRAM
     Route: 048
  6. ESTRADIOL. [Suspect]
     Active Substance: ESTRADIOL
     Dosage: UNK, EVERY 2 DAYS
     Route: 062
  7. PREDNISOLONE. [Suspect]
     Active Substance: PREDNISOLONE
     Indication: SYSTEMIC LUPUS ERYTHEMATOSUS
     Dosage: 7.5 MILLIGRAM
     Route: 065
  8. TACROLIMUS. [Suspect]
     Active Substance: TACROLIMUS
     Indication: SYSTEMIC LUPUS ERYTHEMATOSUS
     Dosage: 4 MILLIGRAM
     Route: 065

REACTIONS (8)
  - Maternal exposure during pregnancy [Unknown]
  - Pelvic infection [Unknown]
  - Blood pressure increased [Unknown]
  - Intrapartum haemorrhage [Recovered/Resolved]
  - Post procedural complication [Unknown]
  - Infarction [Unknown]
  - Normal newborn [Unknown]
  - Placenta accreta [Unknown]
